FAERS Safety Report 8450545-2 (Version None)
Quarter: 2012Q2

REPORT INFORMATION
  Report Type: 
  Country: None (occurrence: None)
  Receive Date: 20120614
  Receipt Date: 20120614
  Transmission Date: 20120825
  Serious: Yes (Other)
  Sender: FDA-Public Use
  Company Number: None

PATIENT
  Age: 5 Year
  Sex: Male

DRUGS (2)
  1. RISPERDAL [Suspect]
     Indication: ATTENTION DEFICIT/HYPERACTIVITY DISORDER
     Dosage: ONCE A DAY PO
     Route: 048
  2. CELEXA [Suspect]
     Indication: ANXIETY
     Dosage: ONCE A DAY

REACTIONS (18)
  - FEELING HOT [None]
  - CHEST PAIN [None]
  - AGGRESSION [None]
  - ABDOMINAL PAIN UPPER [None]
  - CRYING [None]
  - HEART RATE DECREASED [None]
  - BACK PAIN [None]
  - ABNORMAL BEHAVIOUR [None]
  - POLLAKIURIA [None]
  - MUSCULOSKELETAL PAIN [None]
  - SKIN DISORDER [None]
  - DRY SKIN [None]
  - PALPITATIONS [None]
  - CONSTIPATION [None]
  - PAIN IN EXTREMITY [None]
  - HYPERHIDROSIS [None]
  - RETCHING [None]
  - EDUCATIONAL PROBLEM [None]
